FAERS Safety Report 21257885 (Version 3)
Quarter: 2022Q4

REPORT INFORMATION
  Report Type: Report from Study
  Country: DO (occurrence: DO)
  Receive Date: 20220826
  Receipt Date: 20221201
  Transmission Date: 20230112
  Serious: Yes (Other)
  Sender: FDA-Public Use
  Company Number: DO-NOVARTISPH-NVSC2022DO130441

PATIENT
  Sex: Female

DRUGS (1)
  1. KISQALI [Suspect]
     Active Substance: RIBOCICLIB
     Indication: Breast cancer
     Dosage: 600 MG, QD
     Route: 048
     Dates: start: 20220208

REACTIONS (6)
  - Confusional state [Unknown]
  - General physical health deterioration [Unknown]
  - Gait disturbance [Unknown]
  - Asthenia [Unknown]
  - Illness [Unknown]
  - Speech disorder [Unknown]
